FAERS Safety Report 11135447 (Version 1)
Quarter: 2015Q2

REPORT INFORMATION
  Report Type: Spontaneous
  Country: US (occurrence: None)
  Receive Date: 20150521
  Receipt Date: 20150521
  Transmission Date: 20150821
  Serious: Yes (Other)
  Sender: FDA-Public Use
  Company Number: US-001934

PATIENT
  Sex: Female

DRUGS (2)
  1. GATTEX [Suspect]
     Active Substance: TEDUGLUTIDE\WATER
     Indication: SHORT-BOWEL SYNDROME
     Route: 058
     Dates: start: 201504
  2. SOLUTIONS FOR PARENTERAL NUTRITION [Concomitant]
     Active Substance: AMINO ACIDS\DEXTROSE\ELECTROLYTES NOS

REACTIONS (10)
  - Neck pain [None]
  - Abdominal pain [None]
  - Foot fracture [None]
  - Nausea [None]
  - Headache [None]
  - Fall [None]
  - Spinal fusion surgery [None]
  - Post procedural complication [None]
  - Insomnia [None]
  - Body temperature increased [None]

NARRATIVE: CASE EVENT DATE: 2015
